FAERS Safety Report 9471562 (Version 1)
Quarter: 2013Q3

REPORT INFORMATION
  Report Type: Spontaneous
  Country: CH (occurrence: CH)
  Receive Date: 20130822
  Receipt Date: 20130822
  Transmission Date: 20140515
  Serious: Yes (Hospitalization)
  Sender: FDA-Public Use
  Company Number: PHHY2013CH088997

PATIENT
  Age: 23 Year
  Sex: Female
  Weight: 55 kg

DRUGS (4)
  1. OSPEN [Suspect]
     Dosage: 3 MIU, TID
     Route: 048
     Dates: start: 20130524, end: 20130527
  2. IRFEN [Suspect]
     Dosage: 400 MG, TID
     Route: 048
     Dates: start: 20130524
  3. DAFALGAN [Suspect]
     Dosage: 1 G, BID
     Route: 048
     Dates: start: 20130523
  4. ASPIRIN [Suspect]
     Dosage: 500 MG, BID
     Route: 048
     Dates: start: 20130523, end: 20130527

REACTIONS (2)
  - Agranulocytosis [Recovered/Resolved]
  - Leukopenia [Recovered/Resolved]
